FAERS Safety Report 17165604 (Version 16)
Quarter: 2021Q1

REPORT INFORMATION
  Report Type: Report from Study
  Country: None (occurrence: US)
  Receive Date: 20191217
  Receipt Date: 20210317
  Transmission Date: 20210419
  Serious: Yes (Other)
  Sender: FDA-Public Use
  Company Number: US-ABBVIE-19K-163-3166959-00

PATIENT
  Age: 77 Year
  Sex: Female

DRUGS (17)
  1. SIMVASTATIN. [Concomitant]
     Active Substance: SIMVASTATIN
     Indication: PRODUCT USED FOR UNKNOWN INDICATION
     Dosage: 10 MG, QD
  2. ESCITALOPRAM [Concomitant]
     Active Substance: ESCITALOPRAM OXALATE
     Indication: PRODUCT USED FOR UNKNOWN INDICATION
     Dosage: 20 MG, UNK
  3. IMBRUVICA [Suspect]
     Active Substance: IBRUTINIB
     Route: 048
     Dates: start: 201809
  4. BABY ASPIRIN [Concomitant]
     Active Substance: ASPIRIN
     Indication: PRODUCT USED FOR UNKNOWN INDICATION
  5. IMBRUVICA [Suspect]
     Active Substance: IBRUTINIB
     Route: 048
     Dates: start: 20190901
  6. TYLENOL [Concomitant]
     Active Substance: ACETAMINOPHEN
     Indication: PRODUCT USED FOR UNKNOWN INDICATION
  7. LIDOCAINE. [Concomitant]
     Active Substance: LIDOCAINE
     Indication: PRODUCT USED FOR UNKNOWN INDICATION
  8. BENADRYL [Concomitant]
     Active Substance: DIPHENHYDRAMINE HYDROCHLORIDE
     Indication: PRODUCT USED FOR UNKNOWN INDICATION
  9. NAUSEA [Concomitant]
     Indication: PRODUCT USED FOR UNKNOWN INDICATION
  10. IMBRUVICA [Suspect]
     Active Substance: IBRUTINIB
     Indication: WALDENSTROM^S MACROGLOBULINAEMIA
     Route: 048
  11. IMBRUVICA [Suspect]
     Active Substance: IBRUTINIB
     Route: 048
     Dates: start: 20201112
  12. ACTOS [Suspect]
     Active Substance: PIOGLITAZONE HYDROCHLORIDE
     Dosage: 15 MG, QD
     Route: 065
  13. OMEPRAZOLE. [Concomitant]
     Active Substance: OMEPRAZOLE
     Indication: PRODUCT USED FOR UNKNOWN INDICATION
     Dosage: 20 MG, UNK
  14. ACTOS [Suspect]
     Active Substance: PIOGLITAZONE HYDROCHLORIDE
     Indication: PRODUCT USED FOR UNKNOWN INDICATION
     Dosage: 30 MG, QD
     Route: 065
  15. LOSARTAN. [Concomitant]
     Active Substance: LOSARTAN
     Indication: PRODUCT USED FOR UNKNOWN INDICATION
     Dosage: 25 MG, UNK
  16. TIZANIDINE. [Concomitant]
     Active Substance: TIZANIDINE
     Indication: PRODUCT USED FOR UNKNOWN INDICATION
     Dosage: 2 MG, BID
  17. ACTOS [Suspect]
     Active Substance: PIOGLITAZONE HYDROCHLORIDE
     Route: 048

REACTIONS (79)
  - Loss of consciousness [Unknown]
  - Poor quality sleep [Unknown]
  - Aphonia [Unknown]
  - Herpes zoster [Unknown]
  - Malaise [Unknown]
  - Pruritus [Unknown]
  - Bone abscess [Not Recovered/Not Resolved]
  - Blood immunoglobulin M increased [Not Recovered/Not Resolved]
  - Haemoglobin abnormal [Unknown]
  - Skin irritation [Unknown]
  - Varicose vein [Unknown]
  - Skin disorder [Unknown]
  - Memory impairment [Unknown]
  - Diarrhoea [Not Recovered/Not Resolved]
  - Rash [Recovering/Resolving]
  - Pain in extremity [Unknown]
  - Dizziness [Not Recovered/Not Resolved]
  - Red blood cell sedimentation rate decreased [Unknown]
  - Hypotension [Recovered/Resolved]
  - Blood immunoglobulin G decreased [Unknown]
  - Viral infection [Not Recovered/Not Resolved]
  - Decreased appetite [Not Recovered/Not Resolved]
  - Arthralgia [Not Recovered/Not Resolved]
  - Genital infection fungal [Not Recovered/Not Resolved]
  - Balance disorder [Not Recovered/Not Resolved]
  - Deafness [Not Recovered/Not Resolved]
  - Impatience [Unknown]
  - Fatigue [Recovering/Resolving]
  - Nasal ulcer [Not Recovered/Not Resolved]
  - Sinus disorder [Unknown]
  - Myalgia [Not Recovered/Not Resolved]
  - Fungal skin infection [Not Recovered/Not Resolved]
  - Pain [Unknown]
  - Fungal infection [Recovered/Resolved]
  - Skin cryotherapy [Recovering/Resolving]
  - Sciatica [Not Recovered/Not Resolved]
  - Tinnitus [Recovered/Resolved]
  - Blood immunoglobulin G increased [Unknown]
  - Epistaxis [Recovered/Resolved]
  - Onychoclasis [Unknown]
  - Dizziness [Unknown]
  - Erythema [Not Recovered/Not Resolved]
  - Ear haemorrhage [Recovering/Resolving]
  - Intentional product use issue [Unknown]
  - Vitamin B12 decreased [Unknown]
  - Arthritis [Not Recovered/Not Resolved]
  - Thrombosis [Unknown]
  - Serum ferritin decreased [Unknown]
  - Weight increased [Unknown]
  - Pain [Not Recovered/Not Resolved]
  - Fatigue [Not Recovered/Not Resolved]
  - Bacterial infection [Unknown]
  - Nausea [Not Recovered/Not Resolved]
  - Dry skin [Unknown]
  - Viral infection [Unknown]
  - Localised infection [Not Recovered/Not Resolved]
  - Bone pain [Not Recovered/Not Resolved]
  - Back pain [Not Recovered/Not Resolved]
  - Swelling face [Not Recovered/Not Resolved]
  - Hiatus hernia [Not Recovered/Not Resolved]
  - Fatigue [Not Recovered/Not Resolved]
  - Neck pain [Not Recovered/Not Resolved]
  - Rash [Recovered/Resolved]
  - Glycosylated haemoglobin decreased [Recovering/Resolving]
  - Weight increased [Unknown]
  - Gastric disorder [Unknown]
  - Laryngitis [Unknown]
  - Pain in extremity [Not Recovered/Not Resolved]
  - Sleep apnoea syndrome [Unknown]
  - Dyspepsia [Not Recovered/Not Resolved]
  - Biopsy skin [Recovering/Resolving]
  - Arthralgia [Not Recovered/Not Resolved]
  - Feeling abnormal [Recovering/Resolving]
  - Sleep disorder [Not Recovered/Not Resolved]
  - Dehydration [Unknown]
  - Dysphagia [Not Recovered/Not Resolved]
  - Stomatitis [Not Recovered/Not Resolved]
  - Neck pain [Not Recovered/Not Resolved]
  - Gingival bleeding [Recovered/Resolved]

NARRATIVE: CASE EVENT DATE: 2019
